FAERS Safety Report 7614115-8 (Version None)
Quarter: 2011Q3

REPORT INFORMATION
  Report Type: 
  Country: None (occurrence: None)
  Receive Date: 20110708
  Receipt Date: 20110623
  Transmission Date: 20111222
  Serious: Yes (Death, Hospitalization)
  Sender: FDA-Public Use
  Company Number: US-DEXPHARM-20110936

PATIENT
  Sex: Male
  Weight: 52 kg

DRUGS (1)
  1. OMEPRAZOLE [Suspect]
     Indication: FLATULENCE
     Dosage: 20 MG ONCE A DAY, ORAL
     Route: 048
     Dates: start: 20101225

REACTIONS (7)
  - FALL [None]
  - FRACTURED COCCYX [None]
  - INCORRECT DRUG ADMINISTRATION DURATION [None]
  - UPPER-AIRWAY COUGH SYNDROME [None]
  - DRUG INEFFECTIVE [None]
  - HIP FRACTURE [None]
  - BALANCE DISORDER [None]
